FAERS Safety Report 23752968 (Version 1)
Quarter: 2024Q2

REPORT INFORMATION
  Report Type: Spontaneous
  Country: US (occurrence: US)
  Receive Date: 20240417
  Receipt Date: 20240417
  Transmission Date: 20240716
  Serious: No
  Sender: FDA-Public Use
  Company Number: US-GILEAD-2024-0669398

PATIENT
  Sex: Male

DRUGS (1)
  1. CAYSTON [Suspect]
     Active Substance: AZTREONAM
     Indication: Cystic fibrosis
     Dosage: UNK
     Route: 065

REACTIONS (1)
  - Circumstance or information capable of leading to medication error [Not Recovered/Not Resolved]
